FAERS Safety Report 14828601 (Version 1)
Quarter: 2018Q2

REPORT INFORMATION
  Report Type: Spontaneous
  Country: US (occurrence: US)
  Receive Date: 20180430
  Receipt Date: 20180430
  Transmission Date: 20180711
  Serious: Yes (Other)
  Sender: FDA-Public Use
  Company Number: PHHY2018US068622

PATIENT
  Weight: 1.68 kg

DRUGS (9)
  1. BETAMETHASONE. [Suspect]
     Active Substance: BETAMETHASONE
     Indication: FOETAL EXPOSURE DURING PREGNANCY
     Route: 064
  2. TREPROSTINIL [Suspect]
     Active Substance: TREPROSTINIL
     Indication: FOETAL EXPOSURE DURING PREGNANCY
     Route: 064
  3. TADALAFIL [Suspect]
     Active Substance: TADALAFIL
     Indication: FOETAL EXPOSURE DURING PREGNANCY
     Route: 064
  4. EPOPROSTENOL. [Suspect]
     Active Substance: EPOPROSTENOL
     Dosage: MATERNAL DOSE: 32NG/KG/MIN
     Route: 064
  5. PREDNISONE. [Suspect]
     Active Substance: PREDNISONE
     Indication: FOETAL EXPOSURE DURING PREGNANCY
     Route: 064
  6. IMMUNOGLOBULIN I.V [Suspect]
     Active Substance: HUMAN IMMUNOGLOBULIN G
     Indication: FOETAL EXPOSURE DURING PREGNANCY
     Route: 064
  7. EPOPROSTENOL. [Suspect]
     Active Substance: EPOPROSTENOL
     Indication: FOETAL EXPOSURE DURING PREGNANCY
     Dosage: MATERNAL DOSE: 20NG/KG/MIN
     Route: 064
  8. ENOXAPARIN [Suspect]
     Active Substance: ENOXAPARIN
     Indication: FOETAL EXPOSURE DURING PREGNANCY
     Dosage: MATERNAL DOSE: 40MG DAILY
     Route: 064
  9. FUROSEMIDE. [Suspect]
     Active Substance: FUROSEMIDE
     Indication: FOETAL EXPOSURE DURING PREGNANCY
     Route: 064

REACTIONS (3)
  - Foetal exposure during pregnancy [Unknown]
  - Low birth weight baby [Unknown]
  - Premature baby [Unknown]
